FAERS Safety Report 19748838 (Version 1)
Quarter: 2021Q3

REPORT INFORMATION
  Report Type: Spontaneous
  Country: ES (occurrence: ES)
  Receive Date: 20210826
  Receipt Date: 20210826
  Transmission Date: 20211014
  Serious: Yes (Life-Threatening, Hospitalization)
  Sender: FDA-Public Use
  Company Number: NVSC2021ES191671

PATIENT
  Age: 72 Year
  Sex: Male
  Weight: 72.2 kg

DRUGS (3)
  1. FUROSEMIDE. [Suspect]
     Active Substance: FUROSEMIDE
     Dosage: 100 MG, Q24H (100MG DIARIOS 3 DIAS (28, 29 Y 30 DE ABRIL))
     Route: 042
     Dates: start: 20210428, end: 20210430
  2. FUROSEMIDE. [Suspect]
     Active Substance: FUROSEMIDE
     Indication: CARDIAC FAILURE
     Dosage: 120 MG, Q24H
     Route: 048
     Dates: start: 20190909
  3. EDEMOX [Suspect]
     Active Substance: ACETAZOLAMIDE
     Indication: CARDIAC FAILURE
     Dosage: 125 MG, Q24H (0?0?1/2)
     Route: 048
     Dates: start: 20210430, end: 20210516

REACTIONS (1)
  - Encephalopathy [Recovered/Resolved]

NARRATIVE: CASE EVENT DATE: 20210508
